FAERS Safety Report 24251354 (Version 1)
Quarter: 2024Q3

REPORT INFORMATION
  Report Type: Spontaneous
  Country: AU (occurrence: AU)
  Receive Date: 20240826
  Receipt Date: 20240826
  Transmission Date: 20241016
  Serious: Yes (Other)
  Sender: ORGANON
  Company Number: None

PATIENT
  Age: 78 Year
  Sex: Female

DRUGS (11)
  1. EZETIMIBE [Suspect]
     Active Substance: EZETIMIBE
     Indication: Product used for unknown indication
     Dosage: UNK
  2. ATORVASTATIN [Suspect]
     Active Substance: ATORVASTATIN
     Indication: Product used for unknown indication
     Dosage: UNK
  3. BUDESONIDE AND FORMOTEROL FUMARATE DIHYDRATE [Suspect]
     Active Substance: BUDESONIDE\FORMOTEROL FUMARATE
     Indication: Product used for unknown indication
     Dosage: UNK
  4. ESOMEPRAZOLE [Suspect]
     Active Substance: ESOMEPRAZOLE
     Indication: Product used for unknown indication
     Dosage: UNK
  5. CANDESARTAN CILEXETIL\HYDROCHLOROTHIAZIDE [Suspect]
     Active Substance: CANDESARTAN CILEXETIL\HYDROCHLOROTHIAZIDE
     Indication: Product used for unknown indication
     Dosage: UNK
  6. LEVOTHYROXINE SODIUM [Suspect]
     Active Substance: LEVOTHYROXINE SODIUM
     Indication: Product used for unknown indication
     Dosage: UNK
  7. RIVAROXABAN [Suspect]
     Active Substance: RIVAROXABAN
     Indication: Product used for unknown indication
     Dosage: UNK
  8. ALBUTEROL SULFATE [Suspect]
     Active Substance: ALBUTEROL SULFATE
     Indication: Product used for unknown indication
     Dosage: UNK
  9. SOTALOL HYDROCHLORIDE [Suspect]
     Active Substance: SOTALOL HYDROCHLORIDE
     Indication: Product used for unknown indication
     Dosage: 160 MILLIGRAM, QD
  10. SOTALOL HYDROCHLORIDE [Suspect]
     Active Substance: SOTALOL HYDROCHLORIDE
     Indication: Atrial fibrillation
  11. SPIRONOLACTONE [Suspect]
     Active Substance: SPIRONOLACTONE
     Indication: Product used for unknown indication
     Dosage: UNK

REACTIONS (2)
  - Electrocardiogram QT prolonged [Unknown]
  - Condition aggravated [Unknown]
